FAERS Safety Report 7017913-7 (Version None)
Quarter: 2010Q3

REPORT INFORMATION
  Report Type: 
  Country: None (occurrence: None)
  Receive Date: 20100928
  Receipt Date: 20100917
  Transmission Date: 20110219
  Serious: Yes (Life-Threatening, Hospitalization)
  Sender: FDA-Public Use
  Company Number: FR-NOVOPROD-313357

PATIENT
  Sex: Female
  Weight: 50 kg

DRUGS (8)
  1. IDEGASP F FLEXPEN [Suspect]
     Indication: TYPE 1 DIABETES MELLITUS
     Dosage: 17 IU, QD
     Route: 058
     Dates: start: 20100331, end: 20100813
  2. IDEGASP F FLEXPEN [Suspect]
     Dosage: 17 IU, QD
     Route: 058
     Dates: start: 20100817, end: 20100908
  3. NOVORAPID FLEXPEN [Suspect]
     Indication: TYPE 1 DIABETES MELLITUS
     Dosage: 10 IU, QD
     Route: 058
     Dates: start: 20100331, end: 20100813
  4. NOVORAPID FLEXPEN [Suspect]
     Dosage: 10 IU, QD
     Route: 058
     Dates: start: 20100816, end: 20100908
  5. DEPAMINE [Concomitant]
     Indication: DEPRESSION
     Dosage: 900 UNK, QD
     Dates: start: 20030101
  6. ALPRAZOLAM [Concomitant]
     Indication: DEPRESSION
     Dosage: 0.5 UNK, UNK
     Dates: start: 20091012
  7. STILNOX                            /00914901/ [Concomitant]
     Indication: DEPRESSION
     Dosage: 10 MG, UNK
     Dates: start: 20091012
  8. EFFEXOR [Concomitant]
     Indication: DEPRESSION
     Dosage: 37.5 MG, UNK
     Dates: start: 20091203

REACTIONS (3)
  - HYPOGLYCAEMIC COMA [None]
  - INTENTIONAL OVERDOSE [None]
  - SUICIDE ATTEMPT [None]
